FAERS Safety Report 6087226-9 (Version None)
Quarter: 2009Q1

REPORT INFORMATION
  Report Type: 
  Country: None (occurrence: None)
  Receive Date: 20090219
  Receipt Date: 20090219
  Transmission Date: 20090719
  Serious: No
  Sender: FDA-Public Use
  Company Number: None

PATIENT
  Age: 65 Year
  Sex: Male
  Weight: 78.9259 kg

DRUGS (1)
  1. LISINOPRIL [Suspect]
     Dosage: 20MG BID PO
     Route: 048

REACTIONS (2)
  - ANGIOEDEMA [None]
  - GENITAL DISORDER MALE [None]
